FAERS Safety Report 8050195-6 (Version None)
Quarter: 2012Q1

REPORT INFORMATION
  Report Type: 
  Country: None (occurrence: None)
  Receive Date: 20120117
  Receipt Date: 20120103
  Transmission Date: 20120608
  Serious: Yes (Hospitalization)
  Sender: FDA-Public Use
  Company Number: NL-CELGENEUS-114-21880-11113524

PATIENT
  Age: 69 Year
  Sex: Male

DRUGS (5)
  1. TRAMADOL HCL [Concomitant]
     Dosage: 100 MILLIGRAM
     Route: 050
  2. ESOMEPRAZOLE SODIUM [Concomitant]
     Dosage: 20 MILLIGRAM
     Route: 065
  3. DEXAMETHASONE [Concomitant]
     Route: 065
     Dates: start: 20110727
  4. REVLIMID [Suspect]
     Indication: MULTIPLE MYELOMA
     Dosage: 15 MILLIGRAM
     Route: 048
     Dates: start: 20110727, end: 20110803
  5. CARBASALAAT CALCIUM [Concomitant]
     Indication: THROMBOSIS PROPHYLAXIS
     Dosage: 100 MILLIGRAM
     Route: 065
     Dates: start: 20110727

REACTIONS (2)
  - JAUNDICE [None]
  - PYREXIA [None]
